FAERS Safety Report 4818301-1 (Version None)
Quarter: 2005Q4

REPORT INFORMATION
  Report Type: 
  Country: None (occurrence: None)
  Receive Date: 20051031
  Receipt Date: 20051031
  Transmission Date: 20060501
  Serious: Yes (Hospitalization)
  Sender: FDA-Public Use
  Company Number: None

PATIENT
  Age: 60 Year
  Sex: Male
  Weight: 84.8226 kg

DRUGS (5)
  1. ASPIRIN [Suspect]
     Indication: BLOOD DISORDER
     Dosage: CHEW ONE TABLET PO DAILY
     Route: 048
     Dates: start: 20050520, end: 20050901
  2. ASPIRIN [Suspect]
     Indication: CARDIOVASCULAR DISORDER
     Dosage: CHEW ONE TABLET PO DAILY
     Route: 048
     Dates: start: 20050520, end: 20050901
  3. ASPIRIN [Suspect]
     Indication: PROPHYLAXIS
     Dosage: CHEW ONE TABLET PO DAILY
     Route: 048
     Dates: start: 20050520, end: 20050901
  4. NAPROXEN [Suspect]
  5. IBUPROFEN [Suspect]

REACTIONS (2)
  - GASTROINTESTINAL HAEMORRHAGE [None]
  - MELAENA [None]
